FAERS Safety Report 8053805-2 (Version None)
Quarter: 2012Q1

REPORT INFORMATION
  Report Type: 
  Country: None (occurrence: None)
  Receive Date: 20120118
  Receipt Date: 20120109
  Transmission Date: 20120608
  Serious: Yes (Death, Hospitalization)
  Sender: FDA-Public Use
  Company Number: US-ACTELION-A-NJ2011-58986

PATIENT

DRUGS (3)
  1. COUMADIN [Concomitant]
  2. TRACLEER [Suspect]
     Indication: PULMONARY ARTERIAL HYPERTENSION
     Dosage: UNK
     Route: 048
     Dates: start: 20020719, end: 20120105
  3. CALCIUM CHANNEL BLOCKERS [Concomitant]

REACTIONS (7)
  - CONTUSION [None]
  - ENZYME ABNORMALITY [None]
  - FATIGUE [None]
  - FLUID OVERLOAD [None]
  - DISEASE COMPLICATION [None]
  - PULMONARY ARTERIAL HYPERTENSION [None]
  - BLOOD PRESSURE INCREASED [None]
